FAERS Safety Report 5953836-X (Version None)
Quarter: 2008Q4

REPORT INFORMATION
  Report Type: 
  Country: None (occurrence: None)
  Receive Date: 20081114
  Receipt Date: 20081103
  Transmission Date: 20090506
  Serious: Yes (Other)
  Sender: FDA-Public Use
  Company Number: US-ELI_LILLY_AND_COMPANY-US200811000484

PATIENT
  Sex: Male

DRUGS (5)
  1. FORTEO [Suspect]
     Indication: OSTEOPOROSIS
     Dosage: 20 UG, DAILY (1/D)
     Dates: start: 20080101, end: 20080101
  2. LASIX [Concomitant]
     Indication: FLUID RETENTION
     Dosage: 40 MG, DAILY (1/D)
     Route: 048
  3. CARDURA [Concomitant]
     Indication: PROSTATIC DISORDER
     Dosage: 8 MG, DAILY (1/D)
  4. NOVOLOG [Concomitant]
     Indication: DIABETES MELLITUS
     Dosage: 28 U, 2/D
  5. NOVOLOG [Concomitant]
     Dosage: SLIDING SCALE, AS NEEDED

REACTIONS (1)
  - RENAL FAILURE [None]
